FAERS Safety Report 6755540-7 (Version None)
Quarter: 2010Q2

REPORT INFORMATION
  Report Type: 
  Country: None (occurrence: None)
  Receive Date: 20100602
  Receipt Date: 20100517
  Transmission Date: 20101027
  Serious: Yes (Other)
  Sender: FDA-Public Use
  Company Number: PHHY2010SI25529

PATIENT
  Age: 36 Year
  Sex: Male

DRUGS (2)
  1. VISUDYNE [Suspect]
     Indication: HAEMANGIOMA
     Dates: start: 20091118, end: 20091118
  2. VISUDYNE [Suspect]
     Indication: HAEMANGIOMA
     Dates: start: 20090827, end: 20090827

REACTIONS (4)
  - ARTHRALGIA [None]
  - HEADACHE [None]
  - INTENTIONAL DRUG MISUSE [None]
  - OFF LABEL USE [None]
